FAERS Safety Report 14720222 (Version 1)
Quarter: 2018Q1

REPORT INFORMATION
  Report Type: Spontaneous
  Country: US (occurrence: US)
  Receive Date: 20180330
  Receipt Date: 20180330
  Transmission Date: 20180509
  Serious: No
  Sender: FDA-Public Use
  Company Number: None

PATIENT
  Sex: Female

DRUGS (14)
  1. METFORMIN [Concomitant]
     Active Substance: METFORMIN HYDROCHLORIDE
  2. LEVOTHYROXIN [Concomitant]
     Active Substance: LEVOTHYROXINE
  3. GLYBURIDE. [Concomitant]
     Active Substance: GLYBURIDE
  4. FLOVENT HFA AER [Concomitant]
  5. VIRTUSSIN AC [Concomitant]
     Active Substance: CODEINE PHOSPHATE\GUAIFENESIN
  6. LEVETIRACETA [Concomitant]
  7. FREESTYLE MIS LANCETS [Concomitant]
  8. OCALIVA [Suspect]
     Active Substance: OBETICHOLIC ACID
     Indication: PRIMARY BILIARY CHOLANGITIS
     Route: 048
     Dates: start: 20180210
  9. MYRBETRIQ [Concomitant]
     Active Substance: MIRABEGRON
  10. URSODIOL. [Concomitant]
     Active Substance: URSODIOL
  11. PRAVASTATIN. [Concomitant]
     Active Substance: PRAVASTATIN
  12. PROAIR HFA [Concomitant]
     Active Substance: ALBUTEROL SULFATE
  13. JANUVIA [Concomitant]
     Active Substance: SITAGLIPTIN PHOSPHATE
  14. FREESTYLE TES [Concomitant]

REACTIONS (1)
  - Abdominal pain upper [None]
